FAERS Safety Report 7227063-2 (Version None)
Quarter: 2011Q1

REPORT INFORMATION
  Report Type: 
  Country: None (occurrence: None)
  Receive Date: 20110114
  Receipt Date: 20110106
  Transmission Date: 20110831
  Serious: Yes (Life-Threatening, Hospitalization)
  Sender: FDA-Public Use
  Company Number: BE-ROCHE-721689

PATIENT
  Sex: Female

DRUGS (10)
  1. LEVOCETIRIZINE HYDROCHLORIDE [Concomitant]
  2. BISOPROLOL [Concomitant]
     Dates: start: 20100801
  3. TRASTUZUMAB [Suspect]
     Indication: BREAST CANCER
     Route: 042
     Dates: start: 20080918, end: 20090910
  4. ASPIRIN [Concomitant]
     Dates: start: 20081124
  5. PACLITAXEL [Suspect]
     Indication: BREAST CANCER
     Route: 065
  6. BROMAZEPAM [Concomitant]
     Dates: start: 20070101
  7. METOCLOPRAMIDE [Concomitant]
  8. DOMPERIDONE [Concomitant]
  9. HYDROCHLOROTHIAZIDE/LISINOPRIL [Concomitant]
     Dates: start: 20070101
  10. THEBACON [Concomitant]

REACTIONS (2)
  - PULMONARY OEDEMA [None]
  - ATRIAL FIBRILLATION [None]
